FAERS Safety Report 9049352 (Version 4)
Quarter: 2013Q1

REPORT INFORMATION
  Report Type: Report from Study
  Country: DE (occurrence: DE)
  Receive Date: 20130205
  Receipt Date: 20130304
  Transmission Date: 20140127
  Serious: Yes (Death, Hospitalization)
  Sender: FDA-Public Use
  Company Number: DE-BRISTOL-MYERS SQUIBB COMPANY-17324567

PATIENT
  Age: 74 Year
  Sex: Female
  Weight: 53 kg

DRUGS (11)
  1. ERBITUX SOLN FOR INF [Suspect]
     Indication: COLORECTAL CANCER METASTATIC
     Dosage: 10-10DEC12-400MG/M2?20DEC12-09JAN13-250MG/M2-21D
     Route: 042
     Dates: start: 20121210, end: 20130114
  2. 5-FLUOROURACIL [Concomitant]
     Indication: COLORECTAL CANCER METASTATIC
     Route: 042
     Dates: start: 20121210
  3. OXALIPLATIN [Concomitant]
     Indication: COLORECTAL CANCER METASTATIC
     Route: 042
     Dates: start: 20121210
  4. CALCIUM FOLINATE [Concomitant]
     Indication: COLORECTAL CANCER METASTATIC
     Route: 042
     Dates: start: 20121210, end: 20130109
  5. MADOPAR [Concomitant]
     Indication: PARKINSON^S DISEASE
     Dates: start: 20121121
  6. MADOPAR [Concomitant]
     Indication: RESTLESS LEGS SYNDROME
     Dates: start: 20121121
  7. CORTICOSTEROID [Concomitant]
     Indication: PREMEDICATION
     Dosage: ONCE
     Route: 042
     Dates: start: 20121210, end: 20121210
  8. KEVATRIL [Concomitant]
     Indication: PREMEDICATION
     Dosage: ONCE
     Route: 042
     Dates: start: 20121210, end: 20121210
  9. L-THYROXINE [Concomitant]
     Indication: HYPOTHYROIDISM
     Route: 048
     Dates: start: 20101029
  10. LEVODOPA [Concomitant]
     Indication: RESTLESS LEGS SYNDROME
     Dosage: LEVODOPA 100
     Route: 048
     Dates: start: 20111213, end: 20121120
  11. ANTIHISTAMINE DRUGS [Concomitant]
     Indication: PREMEDICATION
     Dosage: 10DEC12-10DEC12?20DEC12-20DEC12
     Route: 042
     Dates: start: 20121210, end: 20121220

REACTIONS (4)
  - Sepsis [Fatal]
  - General physical health deterioration [Not Recovered/Not Resolved]
  - Fatigue [Not Recovered/Not Resolved]
  - Diarrhoea [Not Recovered/Not Resolved]
